FAERS Safety Report 5678768-6 (Version None)
Quarter: 2008Q1

REPORT INFORMATION
  Report Type: 
  Country: None (occurrence: None)
  Receive Date: 20080324
  Receipt Date: 20080324
  Transmission Date: 20080703
  Serious: No
  Sender: FDA-Public Use
  Company Number: None

PATIENT
  Age: 47 Year
  Sex: Female
  Weight: 67.1324 kg

DRUGS (1)
  1. CHANTIX [Suspect]
     Indication: SMOKING CESSATION THERAPY
     Dosage: AS DIRECTED AS DIRECTED PO
     Route: 048
     Dates: start: 20071217, end: 20080108

REACTIONS (3)
  - ABNORMAL BEHAVIOUR [None]
  - PALPITATIONS [None]
  - SUICIDAL IDEATION [None]
